FAERS Safety Report 6771511-9 (Version None)
Quarter: 2010Q2

REPORT INFORMATION
  Report Type: 
  Country: None (occurrence: None)
  Receive Date: 20100616
  Receipt Date: 20100608
  Transmission Date: 20101027
  Serious: Yes (Congenital Anomaly)
  Sender: FDA-Public Use
  Company Number: JP-ROCHE-708848

PATIENT
  Sex: Female
  Weight: 2.3 kg

DRUGS (1)
  1. TAMIFLU [Suspect]
     Dosage: DRUG TAKEN APPROX. FOR 5 DAYS.
     Route: 064
     Dates: start: 20091101, end: 20091101

REACTIONS (2)
  - DANDY-WALKER SYNDROME [None]
  - PIERRE ROBIN SYNDROME [None]
